FAERS Safety Report 11813339 (Version 1)
Quarter: 2015Q4

REPORT INFORMATION
  Report Type: Spontaneous
  Country: US (occurrence: None)
  Receive Date: 20151208
  Receipt Date: 20151208
  Transmission Date: 20160305
  Serious: Yes (Hospitalization)
  Sender: FDA-Public Use
  Company Number: None

PATIENT
  Age: 68 Year
  Sex: Male
  Weight: 132.1 kg

DRUGS (6)
  1. ALEVE [Suspect]
     Active Substance: NAPROXEN SODIUM
     Indication: MUSCULOSKELETAL PAIN
     Dosage: CHRONIC
     Route: 048
  2. PHOSLO [Concomitant]
     Active Substance: CALCIUM ACETATE
  3. JANUVIA [Concomitant]
     Active Substance: SITAGLIPTIN PHOSPHATE
  4. ASPIRIN. [Suspect]
     Active Substance: ASPIRIN
     Indication: CEREBROVASCULAR ACCIDENT PROPHYLAXIS
     Dosage: CHRONIC
     Route: 048
  5. COREG [Concomitant]
     Active Substance: CARVEDILOL
  6. APAP [Concomitant]
     Active Substance: ACETAMINOPHEN

REACTIONS (4)
  - Haemorrhagic anaemia [None]
  - Chronic gastritis [None]
  - Condition aggravated [None]
  - Upper gastrointestinal haemorrhage [None]

NARRATIVE: CASE EVENT DATE: 20150308
